FAERS Safety Report 7673464-8 (Version None)
Quarter: 2011Q3

REPORT INFORMATION
  Report Type: 
  Country: None (occurrence: None)
  Receive Date: 20110711
  Receipt Date: 20110411
  Transmission Date: 20111222
  Serious: Yes (Disabling)
  Sender: FDA-Public Use
  Company Number: IPC201104-000616

PATIENT

DRUGS (6)
  1. REGLAN [Suspect]
     Indication: IMPAIRED GASTRIC EMPTYING
  2. REGLAN [Suspect]
     Indication: DYSPEPSIA
  3. REGLAN [Suspect]
     Indication: ABDOMINAL DISTENSION
  4. METOCLOPRAMIDE HYDROCHLORIDE (METOCLOPRAMIDE HYDROCHLORIDE)  (METOCLOP [Suspect]
     Indication: DYSPEPSIA
     Dosage: SYRUP, ORAL
     Route: 048
     Dates: start: 20081101, end: 20090326
  5. METOCLOPRAMIDE HYDROCHLORIDE (METOCLOPRAMIDE HYDROCHLORIDE)  (METOCLOP [Suspect]
     Indication: IMPAIRED GASTRIC EMPTYING
     Dosage: SYRUP, ORAL
     Route: 048
     Dates: start: 20081101, end: 20090326
  6. METOCLOPRAMIDE HYDROCHLORIDE (METOCLOPRAMIDE HYDROCHLORIDE)  (METOCLOP [Suspect]
     Indication: ABDOMINAL DISTENSION
     Dosage: SYRUP, ORAL
     Route: 048
     Dates: start: 20081101, end: 20090326

REACTIONS (2)
  - EXTRAPYRAMIDAL DISORDER [None]
  - TARDIVE DYSKINESIA [None]
